FAERS Safety Report 4896334-7 (Version None)
Quarter: 2006Q1

REPORT INFORMATION
  Report Type: 
  Country: None (occurrence: None)
  Receive Date: 20060126
  Receipt Date: 20060116
  Transmission Date: 20060701
  Serious: Yes (Hospitalization)
  Sender: FDA-Public Use
  Company Number: 2006-00168

PATIENT
  Age: 41 Year
  Sex: Female

DRUGS (3)
  1. MIRTAZAPINE [Suspect]
     Dosage: ORAL
     Route: 048
  2. HALOPERIDOL [Suspect]
     Dosage: ORAL
     Route: 048
  3. AMISULPRIDE(AMISULPRIDE) [Suspect]
     Dosage: ORAL
     Route: 048

REACTIONS (2)
  - CENTRAL PONTINE MYELINOLYSIS [None]
  - HYPONATRAEMIA [None]
